FAERS Safety Report 5051194-9 (Version None)
Quarter: 2006Q3

REPORT INFORMATION
  Report Type: 
  Country: None (occurrence: None)
  Receive Date: 20060714
  Receipt Date: 20060704
  Transmission Date: 20061208
  Serious: Yes (Hospitalization)
  Sender: FDA-Public Use
  Company Number: JP-ROCHE-454440

PATIENT
  Age: 65 Year
  Sex: Female

DRUGS (11)
  1. PEG-INTERFERON A-2A (RO 25-8310) [Suspect]
     Route: 058
     Dates: start: 20040202, end: 20040531
  2. PEG-INTERFERON A-2A (RO 25-8310) [Suspect]
     Route: 058
     Dates: start: 20040802, end: 20041012
  3. PEG-INTERFERON A-2A (RO 25-8310) [Suspect]
     Route: 058
     Dates: start: 20041129, end: 20041206
  4. PEG-INTERFERON A-2A (RO 25-8310) [Suspect]
     Route: 058
     Dates: start: 20041213, end: 20050214
  5. PEG-INTERFERON A-2A (RO 25-8310) [Suspect]
     Route: 058
     Dates: start: 20050221, end: 20050404
  6. PEG-INTERFERON A-2A (RO 25-8310) [Suspect]
     Route: 058
     Dates: start: 20050411, end: 20050912
  7. PEG-INTERFERON A-2A (RO 25-8310) [Suspect]
     Route: 058
     Dates: start: 20051102
  8. URSO [Concomitant]
     Dosage: DOSE FORM: ORAL FORMULATION (NOT OTHERWISE SPECIFIED)
     Route: 048
  9. GASTER [Concomitant]
     Dosage: DOSE FORM: ORAL FORMULATION (NOT OTHERWISE SPECIFIED)
     Route: 048
  10. ALTAT [Concomitant]
     Route: 048
     Dates: start: 20041025
  11. FERROMIA [Concomitant]
     Dosage: DOSE FORM: ORAL FORMULATION (NOT OTHERWISE SPECIFIED)
     Route: 048
     Dates: start: 20051102

REACTIONS (1)
  - HEPATIC NEOPLASM MALIGNANT [None]
